FAERS Safety Report 11571791 (Version 2)
Quarter: 2016Q4

REPORT INFORMATION
  Report Type: Spontaneous
  Country: US (occurrence: US)
  Receive Date: 20150929
  Receipt Date: 20161007
  Transmission Date: 20170206
  Serious: No
  Sender: FDA-Public Use
  Company Number: US-SA-2015SA119617

PATIENT
  Age: 54 Year
  Sex: Female

DRUGS (4)
  1. AUBAGIO [Suspect]
     Active Substance: TERIFLUNOMIDE
     Indication: MULTIPLE SCLEROSIS
     Route: 048
  2. GABAPENTIN. [Concomitant]
     Active Substance: GABAPENTIN
  3. OXYBUTYNIN CHLORIDE. [Concomitant]
     Active Substance: OXYBUTYNIN CHLORIDE
  4. BACLOFEN. [Concomitant]
     Active Substance: BACLOFEN

REACTIONS (8)
  - Decreased appetite [Unknown]
  - Decreased interest [Unknown]
  - Heart rate increased [Unknown]
  - Fatigue [Unknown]
  - Dry mouth [Unknown]
  - Gait disturbance [Unknown]
  - Weight decreased [Unknown]
  - Depressed mood [Unknown]
